FAERS Safety Report 19474770 (Version 1)
Quarter: 2021Q2

REPORT INFORMATION
  Report Type: Spontaneous
  Country: FR (occurrence: FR)
  Receive Date: 20210630
  Receipt Date: 20210630
  Transmission Date: 20210717
  Serious: Yes (Life-Threatening, Hospitalization, Other)
  Sender: FDA-Public Use
  Company Number: FR-GRANULES-FR-2021GRALIT00360

PATIENT
  Age: 26 Year
  Sex: Male

DRUGS (3)
  1. LEVOSIMENDAN [Interacting]
     Active Substance: LEVOSIMENDAN
     Indication: PRODUCT USED FOR UNKNOWN INDICATION
     Route: 065
  2. AMPHETAMINE SULFATE. [Suspect]
     Active Substance: AMPHETAMINE SULFATE
     Indication: PRODUCT USED FOR UNKNOWN INDICATION
     Route: 065
  3. DOBUTAMINE [Interacting]
     Active Substance: DOBUTAMINE HYDROCHLORIDE
     Indication: PRODUCT USED FOR UNKNOWN INDICATION
     Dosage: 15??G.KG?1.MIN?1
     Route: 065

REACTIONS (2)
  - Cardiogenic shock [Recovering/Resolving]
  - Stress cardiomyopathy [Recovering/Resolving]
